FAERS Safety Report 25273247 (Version 1)
Quarter: 2025Q2

REPORT INFORMATION
  Report Type: Spontaneous
  Country: US (occurrence: US)
  Receive Date: 20250506
  Receipt Date: 20250506
  Transmission Date: 20250716
  Serious: Yes (Hospitalization)
  Sender: AMNEAL
  Company Number: US-AMNEAL PHARMACEUTICALS-2024-AMRX-01209

PATIENT
  Age: 1 Year
  Sex: Male
  Weight: 8.1 kg

DRUGS (1)
  1. VIGABATRIN [Suspect]
     Active Substance: VIGABATRIN
     Indication: Seizure
     Dosage: 500MG, DILUTE 1 PACKET IN 10 ML OF WATER AND DRINK 10 ML (500 MG) TWICE A DAY
     Route: 065

REACTIONS (1)
  - Viral infection [Recovered/Resolved]

NARRATIVE: CASE EVENT DATE: 20240325
